FAERS Safety Report 6596366-7 (Version None)
Quarter: 2010Q1

REPORT INFORMATION
  Report Type: 
  Country: None (occurrence: None)
  Receive Date: 20100223
  Receipt Date: 20100219
  Transmission Date: 20100710
  Serious: Yes (Death)
  Sender: FDA-Public Use
  Company Number: PHEH2010US02548

PATIENT
  Sex: Female
  Weight: 50.794 kg

DRUGS (1)
  1. TASIGNA [Suspect]
     Indication: CHRONIC MYELOID LEUKAEMIA
     Dosage: 400MG AM / 200MG PM EVERY OTHER DAY
     Route: 048
     Dates: start: 20080821

REACTIONS (6)
  - CELLULITIS [None]
  - EFFUSION [None]
  - FAILURE TO THRIVE [None]
  - GANGRENE [None]
  - PERIPHERAL ARTERIAL OCCLUSIVE DISEASE [None]
  - THROMBOCYTOPENIA [None]
